FAERS Safety Report 8851242 (Version 1)
Quarter: 2012Q4

REPORT INFORMATION
  Report Type: 
  Country: US (occurrence: US)
  Receive Date: 20121019
  Receipt Date: 20121019
  Transmission Date: 20130627
  Serious: Yes (Other)
  Sender: FDA-Public Use
  Company Number: US-TEVA-365014USA

PATIENT
  Sex: Male

DRUGS (1)
  1. FENTORA [Suspect]
     Route: 002

REACTIONS (2)
  - Neoplasm malignant [Not Recovered/Not Resolved]
  - Aphagia [Not Recovered/Not Resolved]
